FAERS Safety Report 10149433 (Version 1)
Quarter: 2014Q2

REPORT INFORMATION
  Report Type: Spontaneous
  Country: US (occurrence: None)
  Receive Date: 20140430
  Receipt Date: 20140430
  Transmission Date: 20141212
  Serious: Yes (Other)
  Sender: FDA-Public Use
  Company Number: 001722867A

PATIENT
  Age: 60 Year
  Sex: Female

DRUGS (3)
  1. MB SKIN BRIGHTENING DECOLLETE + NECK TREATMENT SPF 15 [Suspect]
     Route: 061
     Dates: start: 20140328
  2. MB ANTIOXIDANT DAY CREME SPF 20 [Suspect]
     Route: 061
     Dates: start: 20140318, end: 20140328
  3. EPIPEN [Concomitant]

REACTIONS (3)
  - Feeling hot [None]
  - Nausea [None]
  - Choking sensation [None]
